FAERS Safety Report 13354080 (Version 1)
Quarter: 2017Q1

REPORT INFORMATION
  Report Type: Spontaneous
  Country: US (occurrence: US)
  Receive Date: 20170320
  Receipt Date: 20170320
  Transmission Date: 20170429
  Serious: Yes (Other)
  Sender: FDA-Public Use
  Company Number: None

PATIENT
  Age: 51 Year
  Sex: Female
  Weight: 64.8 kg

DRUGS (13)
  1. ZOLOFT/SERTRALINE [Concomitant]
  2. OMEGA 3 SUPPLEMENT [Concomitant]
  3. PROBIOTIC [Concomitant]
     Active Substance: PROBIOTICS NOS
  4. MAGNESIUM SUPPLEMENT [Concomitant]
  5. PLAQUENIL [Suspect]
     Active Substance: HYDROXYCHLOROQUINE SULFATE
     Indication: RHEUMATOID ARTHRITIS
     Dosage: ?          QUANTITY:2 TABLET(S);?
     Route: 048
     Dates: start: 20080619, end: 20150724
  6. TRAZODONE [Concomitant]
     Active Substance: TRAZODONE HYDROCHLORIDE
  7. VIVELLE DOT ESTROGEN PATCH [Concomitant]
  8. MULTI-VITAMIN [Concomitant]
     Active Substance: .ALPHA.-TOCOPHEROL ACETATE, DL-\ASCORBIC ACID\CYANOCOBALAMIN\FLUORIDE ION\FOLIC ACID\NIACIN\PYRIDOXINE\RIBOFLAVIN\THIAMINE\VITAMIN A\VITAMIN D
  9. DECONGESTANT [Concomitant]
     Active Substance: UNSPECIFIED INGREDIENT
  10. CALCIUM SUPPLEMENT [Concomitant]
     Active Substance: CALCIUM
  11. IBUPROFEN. [Concomitant]
     Active Substance: IBUPROFEN
  12. FLONASE [Concomitant]
     Active Substance: FLUTICASONE PROPIONATE
  13. ANTIHISTAMINE [Concomitant]
     Active Substance: UNSPECIFIED INGREDIENT

REACTIONS (1)
  - Maculopathy [None]

NARRATIVE: CASE EVENT DATE: 20150724
